FAERS Safety Report 11999769 (Version 1)
Quarter: 2016Q1

REPORT INFORMATION
  Report Type: Other
  Country: GB (occurrence: GB)
  Receive Date: 20160204
  Receipt Date: 20160204
  Transmission Date: 20160526
  Serious: Yes (Other)
  Sender: FDA-Public Use
  Company Number: GB-TARO PHARMACEUTICALS USA.,INC-2016SUN00067

PATIENT
  Age: 74 Year
  Sex: Female
  Weight: 59.41 kg

DRUGS (7)
  1. WARFARIN [Suspect]
     Active Substance: WARFARIN
     Indication: PRODUCT USED FOR UNKNOWN INDICATION
     Dosage: 3 MG, UNK
     Route: 048
     Dates: start: 20150627, end: 20150922
  2. WARFARIN [Suspect]
     Active Substance: WARFARIN
     Dosage: 7 MG, UNK
     Route: 048
     Dates: start: 20150922, end: 20151008
  3. BIMATOPROST. [Concomitant]
     Active Substance: BIMATOPROST
  4. ADCAL-D3 [Concomitant]
     Active Substance: CALCIUM CARBONATE\CHOLECALCIFEROL
  5. COD LIVER OIL [Concomitant]
     Active Substance: COD LIVER OIL
  6. WARFARIN [Suspect]
     Active Substance: WARFARIN
     Dosage: 6 MG, UNK
     Route: 048
     Dates: start: 20151008, end: 20151218
  7. LABS THEA TIMOLOL [Concomitant]

REACTIONS (4)
  - Frequent bowel movements [Recovering/Resolving]
  - Faeces soft [Not Recovered/Not Resolved]
  - Abdominal discomfort [Recovered/Resolved with Sequelae]
  - Fatigue [Recovering/Resolving]

NARRATIVE: CASE EVENT DATE: 20150803
